FAERS Safety Report 15386664 (Version 3)
Quarter: 2019Q2

REPORT INFORMATION
  Report Type: Spontaneous
  Country: US (occurrence: US)
  Receive Date: 20180914
  Receipt Date: 20190614
  Transmission Date: 20190711
  Serious: Yes (Hospitalization, Other)
  Sender: FDA-Public Use
  Company Number: US-ASTRAZENECA-2018SF16250

PATIENT
  Age: 24222 Day
  Sex: Male
  Weight: 108.9 kg

DRUGS (34)
  1. HYDROCORTISONE. [Concomitant]
     Active Substance: HYDROCORTISONE
     Indication: STEROID THERAPY
  2. VANCOMYCIN [Concomitant]
     Active Substance: VANCOMYCIN
  3. TIZANIDINE. [Concomitant]
     Active Substance: TIZANIDINE
  4. NEXIUM [Suspect]
     Active Substance: ESOMEPRAZOLE MAGNESIUM
     Indication: GASTROOESOPHAGEAL REFLUX DISEASE
     Route: 048
     Dates: start: 20131218
  5. NEXIUM [Suspect]
     Active Substance: ESOMEPRAZOLE MAGNESIUM
     Indication: GASTROOESOPHAGEAL REFLUX DISEASE
     Route: 048
     Dates: start: 201507, end: 201602
  6. PANTOPRAZOLE [Suspect]
     Active Substance: PANTOPRAZOLE
     Indication: GASTROOESOPHAGEAL REFLUX DISEASE
     Dosage: GENERIC-40MG
     Route: 065
     Dates: start: 201311, end: 201401
  7. DIAZEPAM. [Concomitant]
     Active Substance: DIAZEPAM
     Indication: PAIN
  8. VANCOMYCIN [Concomitant]
     Active Substance: VANCOMYCIN
     Indication: ANTIBIOTIC THERAPY
     Dates: start: 201510
  9. ONDANSETRON [Concomitant]
     Active Substance: ONDANSETRON
  10. FERROUS SULFATE. [Concomitant]
     Active Substance: FERROUS SULFATE
     Indication: NUTRITIONAL SUPPLEMENTATION
  11. CARAFATE [Concomitant]
     Active Substance: SUCRALFATE
     Indication: ABDOMINAL PAIN UPPER
  12. AVODART [Concomitant]
     Active Substance: DUTASTERIDE
     Indication: PAIN
  13. ROSUVASTATIN. [Concomitant]
     Active Substance: ROSUVASTATIN
  14. PANTOPRAZOLE [Suspect]
     Active Substance: PANTOPRAZOLE
     Indication: GASTROOESOPHAGEAL REFLUX DISEASE
     Route: 065
     Dates: start: 201705, end: 201706
  15. MEPROZINE [Concomitant]
  16. MONTELUKAST [Concomitant]
     Active Substance: MONTELUKAST SODIUM
  17. TAMSULOSIN [Concomitant]
     Active Substance: TAMSULOSIN
  18. MEPERIDINE [Concomitant]
     Active Substance: MEPERIDINE
  19. FLUVIRIN NOS [Concomitant]
     Active Substance: INFLUENZA VIRUS VACCINE
  20. FLUZONE [Concomitant]
     Active Substance: INFLUENZA A VIRUS A/CALIFORNIA/7/2009 X-179A (H1N1) ANTIGEN (FORMALDEHYDE INACTIVATED)\INFLUENZA A VIRUS A/VICTORIA/210/2009 X-187 (H3N2) ANTIGEN (FORMALDEHYDE INACTIVATED)\INFLUENZA B VIRUS B/BRISBANE/60/2008 ANTIGEN (FORMALDEHYDE INACTIVATED)
  21. NEXIUM [Suspect]
     Active Substance: ESOMEPRAZOLE MAGNESIUM
     Indication: GASTROOESOPHAGEAL REFLUX DISEASE
     Route: 048
     Dates: start: 2013, end: 2017
  22. PANTOPRAZOLE [Suspect]
     Active Substance: PANTOPRAZOLE
     Indication: GASTROOESOPHAGEAL REFLUX DISEASE
     Route: 065
     Dates: start: 20170503
  23. TAMSULOSIN [Concomitant]
     Active Substance: TAMSULOSIN
     Indication: URINARY RETENTION
  24. BENZONATATE. [Concomitant]
     Active Substance: BENZONATATE
  25. LIDOCAINE. [Concomitant]
     Active Substance: LIDOCAINE
  26. ONDANSETRON [Concomitant]
     Active Substance: ONDANSETRON
  27. NEXIUM [Suspect]
     Active Substance: ESOMEPRAZOLE MAGNESIUM
     Indication: GASTROOESOPHAGEAL REFLUX DISEASE
     Route: 048
     Dates: start: 201311, end: 201406
  28. PREDNISONE. [Concomitant]
     Active Substance: PREDNISONE
     Indication: STEROID THERAPY
  29. GABAPENTIN. [Concomitant]
     Active Substance: GABAPENTIN
     Indication: DIABETES MELLITUS
  30. AMOXICILLIN. [Concomitant]
     Active Substance: AMOXICILLIN
  31. CLARITHROMYCIN. [Concomitant]
     Active Substance: CLARITHROMYCIN
  32. DIAZEPAM. [Concomitant]
     Active Substance: DIAZEPAM
  33. LEVAQUIN [Concomitant]
     Active Substance: LEVOFLOXACIN
  34. CEFAZOLIN [Concomitant]
     Active Substance: CEFAZOLIN

REACTIONS (4)
  - Renal tubular necrosis [Unknown]
  - Renal failure [Unknown]
  - Acute kidney injury [Not Recovered/Not Resolved]
  - Chronic kidney disease [Unknown]

NARRATIVE: CASE EVENT DATE: 20150922
